FAERS Safety Report 10066265 (Version 2)
Quarter: 2014Q2

REPORT INFORMATION
  Report Type: Spontaneous
  Country: GB (occurrence: GB)
  Receive Date: 20140408
  Receipt Date: 20140408
  Transmission Date: 20141212
  Serious: Yes (Hospitalization)
  Sender: FDA-Public Use
  Company Number: PHFR2014GB001487

PATIENT
  Sex: Male

DRUGS (2)
  1. CLOZARIL [Suspect]
     Dosage: 300 MG, BID
     Route: 048
     Dates: start: 20120214
  2. CLOZARIL [Suspect]
     Dosage: 500 MG, IN THE MORNING (OM)
     Route: 048
     Dates: start: 20140212

REACTIONS (1)
  - Medication error [Unknown]
